FAERS Safety Report 13477978 (Version 1)
Quarter: 2017Q2

REPORT INFORMATION
  Report Type: Spontaneous
  Country: CA (occurrence: CA)
  Receive Date: 20170425
  Receipt Date: 20170425
  Transmission Date: 20170830
  Serious: Yes (Other)
  Sender: FDA-Public Use
  Company Number: CA-009507513-1405CAN014654

PATIENT
  Sex: Female

DRUGS (1)
  1. TEMODAL [Suspect]
     Active Substance: TEMOZOLOMIDE
     Indication: NEUROENDOCRINE CARCINOMA METASTATIC
     Dosage: 280 MG, DAILY X 5 DAYS
     Route: 048
     Dates: start: 201204, end: 201508

REACTIONS (2)
  - Fatigue [Unknown]
  - Neuroendocrine carcinoma metastatic [Unknown]
